FAERS Safety Report 12362424 (Version 4)
Quarter: 2016Q2

REPORT INFORMATION
  Report Type: Report from Study
  Country: US (occurrence: US)
  Receive Date: 20160512
  Receipt Date: 20160628
  Transmission Date: 20160815
  Serious: Yes (Other)
  Sender: FDA-Public Use
  Company Number: US-BAYER-2016-077782

PATIENT
  Age: 63 Year
  Sex: Female
  Weight: 53.52 kg

DRUGS (22)
  1. MULTIVITAMINS [Concomitant]
     Active Substance: VITAMINS
  2. VITAMIN B COMPLEX COX [Concomitant]
  3. PROTEINS NOS [Concomitant]
  4. ZOLPIDEM [Concomitant]
     Active Substance: ZOLPIDEM\ZOLPIDEM TARTRATE
  5. ONDANSETRON [Concomitant]
     Active Substance: ONDANSETRON
  6. NEXAVAR [Suspect]
     Active Substance: SORAFENIB
     Indication: HEPATIC CANCER
     Dosage: 400 MG, BID (TWO TABLETS TWICE DAILY)
     Route: 048
     Dates: start: 20160412, end: 20160429
  7. ROSUVASTATIN. [Concomitant]
     Active Substance: ROSUVASTATIN
  8. LOSARTAN. [Concomitant]
     Active Substance: LOSARTAN
  9. ESTRING [Concomitant]
     Active Substance: ESTRADIOL
     Dosage: 0.75 MCG
  10. MOMETASONE [Concomitant]
     Active Substance: MOMETASONE
  11. NEXAVAR [Suspect]
     Active Substance: SORAFENIB
     Indication: B-CELL LYMPHOMA
     Dosage: 400 MG, BID
     Route: 048
  12. METHYLPREDNISOLON [Concomitant]
     Active Substance: METHYLPREDNISOLONE
  13. LATANOPROST. [Concomitant]
     Active Substance: LATANOPROST
  14. LORAZEPAM. [Concomitant]
     Active Substance: LORAZEPAM
  15. PRISTIQ EXTENDED-RELEASE [Concomitant]
     Active Substance: DESVENLAFAXINE SUCCINATE
  16. VITAMIN B COMPLEX [Concomitant]
     Active Substance: CYANOCOBALAMIN\DEXPANTHENOL\NIACINAMIDE\PYRIDOXINE HYDROCHLORIDE\RIBOFLAVIN 5^-PHOSPHATE SODIUM\THIAMINE HYDROCHLORIDE\VITAMIN B COMPLEX
  17. CURCUMIN [Concomitant]
     Active Substance: CURCUMIN
  18. DOXYCYCLIN [DOXYCYCLINE] [Concomitant]
  19. ALLOPURINOL. [Concomitant]
     Active Substance: ALLOPURINOL
  20. HYDROCHLOROTHIAZIDE. [Concomitant]
     Active Substance: HYDROCHLOROTHIAZIDE
  21. CALCITRIOL. [Concomitant]
     Active Substance: CALCITRIOL
  22. DOXYCYCLIN AL [DOXYCYCLINE HYCLATE] [Concomitant]

REACTIONS (45)
  - Rash macular [Unknown]
  - Skin tightness [Not Recovered/Not Resolved]
  - Skin reaction [Recovering/Resolving]
  - Palmar-plantar erythrodysaesthesia syndrome [Recovering/Resolving]
  - Diarrhoea [None]
  - Rash generalised [Unknown]
  - Pain in extremity [None]
  - Activities of daily living impaired [Recovering/Resolving]
  - Hypoaesthesia [Recovering/Resolving]
  - Ear discomfort [None]
  - Constipation [None]
  - Diarrhoea [Unknown]
  - Dizziness [Unknown]
  - Hyperkeratosis [Unknown]
  - Insomnia [None]
  - Pruritus [Unknown]
  - Acne [Unknown]
  - Anxiety [None]
  - Insomnia [Unknown]
  - Urinary retention [None]
  - Glossodynia [None]
  - Erythema [None]
  - Hyperkeratosis [Recovering/Resolving]
  - Blister [Not Recovered/Not Resolved]
  - Skin reaction [Not Recovered/Not Resolved]
  - Flushing [Unknown]
  - Nausea [Unknown]
  - Abdominal pain upper [None]
  - Pruritus generalised [Unknown]
  - Hyperkeratosis [None]
  - Skin discolouration [Recovering/Resolving]
  - Chills [Not Recovered/Not Resolved]
  - Gait disturbance [Recovering/Resolving]
  - Rash [Recovering/Resolving]
  - Palmar-plantar erythrodysaesthesia syndrome [Not Recovered/Not Resolved]
  - Weight decreased [None]
  - Chills [Unknown]
  - Nausea [None]
  - Pain [None]
  - Chills [None]
  - Rhinorrhoea [None]
  - Somnolence [None]
  - Nervousness [Unknown]
  - Pain in extremity [Unknown]
  - Gait disturbance [None]

NARRATIVE: CASE EVENT DATE: 20160421
